FAERS Safety Report 19878587 (Version 1)
Quarter: 2021Q3

REPORT INFORMATION
  Report Type: Report from Study
  Country: US (occurrence: US)
  Receive Date: 20210923
  Receipt Date: 20210923
  Transmission Date: 20211014
  Serious: Yes (Death, Other)
  Sender: FDA-Public Use
  Company Number: US-GILEAD-2021-0549805

PATIENT
  Sex: Male

DRUGS (1)
  1. REMDESIVIR. [Suspect]
     Active Substance: REMDESIVIR
     Indication: PRODUCT USED FOR UNKNOWN INDICATION
     Route: 065

REACTIONS (1)
  - Death [Fatal]
